FAERS Safety Report 6127262-7 (Version None)
Quarter: 2009Q1

REPORT INFORMATION
  Report Type: 
  Country: None (occurrence: None)
  Receive Date: 20090319
  Receipt Date: 20090305
  Transmission Date: 20090719
  Serious: Yes (Hospitalization)
  Sender: FDA-Public Use
  Company Number: 02100-JPN-07-0781

PATIENT
  Age: 62 Year
  Sex: Female

DRUGS (4)
  1. PLAVIX [Suspect]
     Indication: CEREBRAL INFARCTION
     Dosage: 75 MG, DAILY DOSE, ORAL
     Route: 048
     Dates: start: 20060817, end: 20070314
  2. ARTEMISIA ASIATICA 95% ETHANOL EXT. (ARTEMISIA ASIATICA 95% ETHANOL EX [Concomitant]
  3. ASPIRIN [Concomitant]
  4. ACETYL-L-CARNITINE (ACETYL-L-CARMITINE) [Concomitant]

REACTIONS (5)
  - BLADDER DISORDER [None]
  - DYSURIA [None]
  - GASTRIC CANCER [None]
  - HYPERTENSION [None]
  - PYREXIA [None]
